FAERS Safety Report 9323762 (Version 1)
Quarter: 2013Q2

REPORT INFORMATION
  Report Type: Report from Study
  Country: CA (occurrence: CA)
  Receive Date: 20130603
  Receipt Date: 20130603
  Transmission Date: 20140414
  Serious: Yes (Other)
  Sender: FDA-Public Use
  Company Number: CA-JNJFOC-20130521286

PATIENT
  Age: 23 Year
  Sex: Female
  Weight: 72 kg

DRUGS (2)
  1. REMICADE [Suspect]
     Indication: RHEUMATOID ARTHRITIS
     Route: 042
     Dates: start: 20130211
  2. BENADRYL [Concomitant]
     Indication: PREMEDICATION
     Dosage: 25-50 MG
     Route: 048

REACTIONS (2)
  - Dyspnoea [Unknown]
  - Syncope [Unknown]
